FAERS Safety Report 16456246 (Version 1)
Quarter: 2019Q2

REPORT INFORMATION
  Report Type: Report from Study
  Country: CO (occurrence: CO)
  Receive Date: 20190620
  Receipt Date: 20190620
  Transmission Date: 20190711
  Serious: Yes (Hospitalization)
  Sender: FDA-Public Use
  Company Number: PHHY2019CO128560

PATIENT
  Sex: Female
  Weight: 51 kg

DRUGS (2)
  1. LETROZOLE. [Suspect]
     Active Substance: LETROZOLE
     Indication: PRODUCT USED FOR UNKNOWN INDICATION
     Dosage: UNK
     Route: 065
  2. AFINITOR [Suspect]
     Active Substance: EVEROLIMUS
     Indication: BREAST CANCER
     Dosage: 10 MG, QD
     Route: 048

REACTIONS (7)
  - Metastases to lung [Unknown]
  - Gastritis [Not Recovered/Not Resolved]
  - Pleural effusion [Unknown]
  - Decreased appetite [Unknown]
  - Metastases to liver [Unknown]
  - Dyspnoea [Unknown]
  - Asthenia [Unknown]
